FAERS Safety Report 6735680-9 (Version None)
Quarter: 2010Q2

REPORT INFORMATION
  Report Type: 
  Country: None (occurrence: None)
  Receive Date: 20100521
  Receipt Date: 20100513
  Transmission Date: 20101027
  Serious: Yes (Hospitalization)
  Sender: FDA-Public Use
  Company Number: JP-BAYER-201011977BYL

PATIENT
  Age: 78 Year
  Sex: Female

DRUGS (2)
  1. ASPIRIN [Suspect]
     Indication: CEREBRAL INFARCTION
     Route: 048
  2. HEPARIN [Suspect]
     Indication: DIALYSIS
     Route: 010

REACTIONS (1)
  - DIVERTICULUM INTESTINAL HAEMORRHAGIC [None]
